FAERS Safety Report 6600945-8 (Version None)
Quarter: 2010Q1

REPORT INFORMATION
  Report Type: 
  Country: None (occurrence: None)
  Receive Date: 20100225
  Receipt Date: 20100218
  Transmission Date: 20100710
  Serious: Yes (Hospitalization, Other)
  Sender: FDA-Public Use
  Company Number: PHHO2010AU02025

PATIENT
  Sex: Female
  Weight: 74 kg

DRUGS (2)
  1. STI571/CGP57148B T35717+CAPS [Suspect]
     Indication: ANGIOSARCOMA METASTATIC
     Dosage: 400 MG, QD
     Route: 048
     Dates: start: 20091218, end: 20100119
  2. PHENOXYMETHYLPENICILLIN [Concomitant]
     Dosage: UNK
     Dates: start: 19970101

REACTIONS (8)
  - ANGIOSARCOMA METASTATIC [None]
  - DYSPNOEA EXERTIONAL [None]
  - MALIGNANT NEOPLASM PROGRESSION [None]
  - NAUSEA [None]
  - NECK PAIN [None]
  - PLEURAL EFFUSION [None]
  - PLEURAL FIBROSIS [None]
  - SKIN LESION [None]
